FAERS Safety Report 23824092 (Version 1)
Quarter: 2024Q2

REPORT INFORMATION
  Report Type: Spontaneous
  Country: US (occurrence: US)
  Receive Date: 20240507
  Receipt Date: 20240507
  Transmission Date: 20240715
  Serious: No
  Sender: FDA-Public Use
  Company Number: US-UCBSA-2023052158

PATIENT
  Age: 76 Year
  Sex: Female
  Weight: 72.109 kg

DRUGS (1)
  1. CIMZIA [Suspect]
     Active Substance: CERTOLIZUMAB PEGOL
     Indication: Ankylosing spondylitis
     Dosage: 200 MILLIGRAM, EV 4 WEEKS
     Route: 058

REACTIONS (4)
  - Nail operation [Unknown]
  - Alopecia [Unknown]
  - Onychomycosis [Unknown]
  - Off label use [Unknown]

NARRATIVE: CASE EVENT DATE: 20231024
